FAERS Safety Report 7122204-X (Version None)
Quarter: 2010Q4

REPORT INFORMATION
  Report Type: 
  Country: None (occurrence: None)
  Receive Date: 20101124
  Receipt Date: 20101111
  Transmission Date: 20110411
  Serious: Yes (Death)
  Sender: FDA-Public Use
  Company Number: GXKR2010IT12881

PATIENT
  Sex: Male

DRUGS (7)
  1. OXALIPLATINO EBEWE (NGX) [Suspect]
     Indication: COLON CANCER
     Dosage: 25 MG/DAY
     Route: 042
     Dates: start: 20101025, end: 20101029
  2. FLUOROURACIL [Suspect]
     Indication: COLON CANCER
     Dosage: 600 MG/DAY
     Route: 042
     Dates: start: 20101025, end: 20101029
  3. TROPISETRON [Concomitant]
     Dosage: 5 MG, UNK
     Route: 048
     Dates: start: 20101025, end: 20101029
  4. PANTOPRAZOLE [Concomitant]
     Dosage: 20 MG, UNK
     Route: 048
     Dates: start: 20101025, end: 20101029
  5. ASA [Concomitant]
     Dosage: 100 MG, UNK
     Route: 048
     Dates: start: 20101025, end: 20101029
  6. ROSUVASTATIN [Concomitant]
     Dosage: 10 MG, UNK
     Route: 048
     Dates: start: 20101025, end: 20101029
  7. DILTIAZEM [Concomitant]
     Dosage: 90 MG, UNK
     Route: 048
     Dates: start: 20101025, end: 20101029

REACTIONS (6)
  - DISSEMINATED INTRAVASCULAR COAGULATION [None]
  - LEUKOPENIA [None]
  - MUCOSAL INFLAMMATION [None]
  - NEUTROPENIA [None]
  - SEPSIS [None]
  - WEIGHT DECREASED [None]
